FAERS Safety Report 24591913 (Version 5)
Quarter: 2025Q3

REPORT INFORMATION
  Report Type: Report from Study
  Country: US (occurrence: US)
  Receive Date: 20241108
  Receipt Date: 20250708
  Transmission Date: 20251021
  Serious: Yes (Other)
  Sender: ABBVIE
  Company Number: US-ABBVIE-5989423

PATIENT
  Age: 73 Year
  Sex: Male
  Weight: 69.853 kg

DRUGS (9)
  1. VENCLEXTA [Suspect]
     Active Substance: VENETOCLAX
     Indication: Chronic lymphocytic leukaemia
     Dosage: LAST ADMIN DATE: 2022, FORM STRENGTH: 100 MG
     Route: 048
     Dates: start: 20221018
  2. VENCLEXTA [Suspect]
     Active Substance: VENETOCLAX
     Indication: Chronic lymphocytic leukaemia
     Dosage: FORM STRENGTH: 100 MG
     Route: 048
     Dates: start: 202211
  3. AMLODIPINE [Concomitant]
     Active Substance: AMLODIPINE BESYLATE
     Indication: Blood pressure measurement
  4. OMEPRAZOLE [Concomitant]
     Active Substance: OMEPRAZOLE
     Indication: Gastrooesophageal reflux disease
  5. METOPROLOL [Concomitant]
     Active Substance: METOPROLOL
     Indication: Product used for unknown indication
  6. ROCKLATAN [Concomitant]
     Active Substance: LATANOPROST\NETARSUDIL MESYLATE
     Indication: Glaucoma
  7. LISINOPRIL [Concomitant]
     Active Substance: LISINOPRIL
     Indication: Blood pressure measurement
  8. ELIQUIS [Concomitant]
     Active Substance: APIXABAN
     Indication: Cardiac disorder
  9. ALLOPURINOL [Concomitant]
     Active Substance: ALLOPURINOL
     Indication: Blood uric acid

REACTIONS (14)
  - Rotator cuff syndrome [Unknown]
  - Fatigue [Recovering/Resolving]
  - Squamous cell carcinoma [Recovered/Resolved]
  - Intervertebral disc protrusion [Recovering/Resolving]
  - Musculoskeletal disorder [Unknown]
  - Decreased activity [Recovering/Resolving]
  - Ligament rupture [Recovered/Resolved]
  - Muscle spasms [Unknown]
  - Arthritis [Recovered/Resolved]
  - Sneezing [Unknown]
  - General physical health deterioration [Unknown]
  - Depressed mood [Unknown]
  - Joint range of motion decreased [Recovering/Resolving]
  - Accident [Unknown]

NARRATIVE: CASE EVENT DATE: 20231201
